FAERS Safety Report 9216928 (Version 1)
Quarter: 2013Q2

REPORT INFORMATION
  Report Type: Spontaneous
  Country: US (occurrence: US)
  Receive Date: 20130408
  Receipt Date: 20130408
  Transmission Date: 20140414
  Serious: No
  Sender: FDA-Public Use
  Company Number: US-PFIZER INC-2013109762

PATIENT
  Sex: Female

DRUGS (1)
  1. GABAPENTIN [Suspect]
     Indication: PAIN
     Dosage: UNK
     Dates: start: 20130403

REACTIONS (3)
  - Dizziness [Unknown]
  - Disorientation [Unknown]
  - Drug ineffective [Unknown]
